FAERS Safety Report 4946141-1 (Version None)
Quarter: 2006Q1

REPORT INFORMATION
  Report Type: 
  Country: None (occurrence: None)
  Receive Date: 20060118
  Receipt Date: 20050119
  Transmission Date: 20060701
  Serious: Yes (Hospitalization)
  Sender: FDA-Public Use
  Company Number: BDI-006838

PATIENT
  Age: 20 Year
  Sex: Female
  Weight: 59 kg

DRUGS (3)
  1. PROHANCE [Suspect]
     Indication: CONVULSION
     Dosage: 15 ML ONCE IV
     Route: 042
     Dates: start: 20050106, end: 20050106
  2. PROHANCE [Suspect]
     Indication: NUCLEAR MAGNETIC RESONANCE IMAGING BRAIN
     Dosage: 15 ML ONCE IV
     Route: 042
     Dates: start: 20050106, end: 20050106
  3. ANTICONVULSANTS [Concomitant]

REACTIONS (7)
  - AGITATION [None]
  - DYSPNOEA [None]
  - HEART RATE INCREASED [None]
  - NAUSEA [None]
  - PRURITUS [None]
  - RESPIRATORY ARREST [None]
  - URTICARIA [None]
